FAERS Safety Report 17327791 (Version 1)
Quarter: 2020Q1

REPORT INFORMATION
  Report Type: Spontaneous
  Country: SE (occurrence: SE)
  Receive Date: 20200127
  Receipt Date: 20200127
  Transmission Date: 20200409
  Serious: Yes (Hospitalization)
  Sender: FDA-Public Use
  Company Number: SE-MYLANLABS-2020M1008955

PATIENT
  Age: 20 Year
  Sex: Female

DRUGS (2)
  1. GABAPENTIN. [Suspect]
     Active Substance: GABAPENTIN
     Indication: PRODUCT USED FOR UNKNOWN INDICATION
     Dosage: OKLAR DOS
     Route: 048
     Dates: start: 20181007, end: 20181007
  2. LERGIGAN (PROMETHAZINE HYDROCHLORIDE) [Suspect]
     Active Substance: PROMETHAZINE HYDROCHLORIDE
     Indication: PRODUCT USED FOR UNKNOWN INDICATION
     Dosage: ^MELLAN 01-03 TAGIT LERGIGAN CA 1 G^
     Route: 048
     Dates: start: 20181007, end: 20181007

REACTIONS (7)
  - Somnolence [Unknown]
  - Intentional self-injury [Unknown]
  - Akathisia [Unknown]
  - Muscle twitching [Unknown]
  - Patient uncooperative [Unknown]
  - Tachycardia [Unknown]
  - Intentional overdose [Unknown]

NARRATIVE: CASE EVENT DATE: 20181007
